FAERS Safety Report 5322718-9 (Version None)
Quarter: 2007Q2

REPORT INFORMATION
  Report Type: 
  Country: None (occurrence: None)
  Receive Date: 20070511
  Receipt Date: 20070502
  Transmission Date: 20071010
  Serious: Yes (Other)
  Sender: FDA-Public Use
  Company Number: GB-PFIZER INC-2006111092

PATIENT
  Age: 49 Year
  Sex: Female
  Weight: 57 kg

DRUGS (3)
  1. PREGABALIN [Suspect]
     Indication: NEURALGIA
     Route: 048
     Dates: start: 20060403, end: 20060703
  2. NORTRIPTYLINE HCL [Concomitant]
     Indication: NEURALGIA
     Route: 048
  3. PARACETAMOL [Concomitant]
     Indication: NEURALGIA
     Route: 048
     Dates: start: 20041101

REACTIONS (4)
  - DRUG WITHDRAWAL SYNDROME [None]
  - NAUSEA [None]
  - PAIN [None]
  - RESTLESSNESS [None]
